FAERS Safety Report 7672650-0 (Version None)
Quarter: 2011Q3

REPORT INFORMATION
  Report Type: 
  Country: None (occurrence: None)
  Receive Date: 20110809
  Receipt Date: 20110803
  Transmission Date: 20111222
  Serious: Yes (Death)
  Sender: FDA-Public Use
  Company Number: US-UCBSA-038285

PATIENT
  Sex: Male
  Weight: 75.29 kg

DRUGS (2)
  1. ROTIGOTINE [Suspect]
     Indication: PARKINSON'S DISEASE
     Route: 062
     Dates: start: 20081229, end: 20110801
  2. SEROQUEL [Concomitant]
     Indication: HALLUCINATION
     Dates: start: 20100114

REACTIONS (1)
  - VOLVULUS [None]
